FAERS Safety Report 11771649 (Version 4)
Quarter: 2016Q4

REPORT INFORMATION
  Report Type: Spontaneous
  Country: US (occurrence: US)
  Receive Date: 20151124
  Receipt Date: 20161006
  Transmission Date: 20170206
  Serious: No
  Sender: FDA-Public Use
  Company Number: US-AMGEN-USASP2015123148

PATIENT
  Age: 68 Year
  Sex: Female

DRUGS (5)
  1. ENBREL [Suspect]
     Active Substance: ETANERCEPT
     Indication: PSORIATIC ARTHROPATHY
     Dosage: UNK UNK, ONCE WEEKLY
     Route: 065
     Dates: start: 201511
  2. ENBREL [Suspect]
     Active Substance: ETANERCEPT
     Indication: OSTEOARTHRITIS
  3. PROLIA [Suspect]
     Active Substance: DENOSUMAB
     Indication: OSTEOPOROSIS
     Dosage: UNK
     Route: 065
     Dates: end: 2014
  4. OXYCODONE [Concomitant]
     Active Substance: OXYCODONE
     Indication: PAIN
  5. EFFEXOR [Concomitant]
     Active Substance: VENLAFAXINE HYDROCHLORIDE
     Indication: DEPRESSION

REACTIONS (14)
  - Chills [Unknown]
  - Arthralgia [Unknown]
  - Adverse event [Unknown]
  - Hyperhidrosis [Unknown]
  - Weight decreased [Unknown]
  - Feeling cold [Unknown]
  - Incorrect product storage [Unknown]
  - Paraesthesia [Unknown]
  - Hypersensitivity [Unknown]
  - Back pain [Unknown]
  - Muscle spasms [Unknown]
  - Injection site pruritus [Recovered/Resolved]
  - Injection site reaction [Recovered/Resolved]
  - Off label use [Unknown]

NARRATIVE: CASE EVENT DATE: 2015
